FAERS Safety Report 8336161-1 (Version None)
Quarter: 2012Q1

REPORT INFORMATION
  Report Type: 
  Country: None (occurrence: None)
  Receive Date: 20120329
  Receipt Date: 20100316
  Transmission Date: 20120608
  Serious: Yes (Other)
  Sender: FDA-Public Use
  Company Number: PHEH2010US03159

PATIENT
  Age: 82 Year
  Sex: Male
  Weight: 59.9 kg

DRUGS (1)
  1. EXELON [Suspect]
     Indication: MENTAL STATUS CHANGES
     Dosage: 4.6 MG, QD, TRANSDERMAL
     Route: 062
     Dates: start: 20090713, end: 20091020

REACTIONS (1)
  - ALANINE AMINOTRANSFERASE INCREASED [None]
